FAERS Safety Report 12628652 (Version 1)
Quarter: 2016Q3

REPORT INFORMATION
  Report Type: Spontaneous
  Country: US (occurrence: US)
  Receive Date: 20160808
  Receipt Date: 20160808
  Transmission Date: 20161109
  Serious: No
  Sender: FDA-Public Use
  Company Number: US-JAZZ-2016-US-004447

PATIENT
  Sex: Female

DRUGS (12)
  1. ZOFRAN [Concomitant]
     Active Substance: ONDANSETRON HYDROCHLORIDE
     Dosage: UNK
  2. MIRALAX [Concomitant]
     Active Substance: POLYETHYLENE GLYCOL 3350
  3. RITALIN [Concomitant]
     Active Substance: METHYLPHENIDATE HYDROCHLORIDE
  4. XYREM [Suspect]
     Active Substance: SODIUM OXYBATE
     Dosage: 2 G, FIRST DOSE
     Dates: start: 201206, end: 2012
  5. HYZAAR [Concomitant]
     Active Substance: HYDROCHLOROTHIAZIDE\LOSARTAN POTASSIUM
  6. KEFLEX [Concomitant]
     Active Substance: CEPHALEXIN
  7. XYREM [Suspect]
     Active Substance: SODIUM OXYBATE
     Indication: NARCOLEPSY
     Dosage: 3 G, BID
     Route: 048
     Dates: start: 200802, end: 2008
  8. LOPRESSOR [Concomitant]
     Active Substance: METOPROLOL TARTRATE
  9. XYREM [Suspect]
     Active Substance: SODIUM OXYBATE
     Dosage: 1 G, SECOND DOSE
     Route: 048
     Dates: start: 201206, end: 2012
  10. IBUPROFEN. [Concomitant]
     Active Substance: IBUPROFEN
  11. MEDROL [Concomitant]
     Active Substance: METHYLPREDNISOLONE
  12. PROVIGIL [Concomitant]
     Active Substance: MODAFINIL

REACTIONS (3)
  - Formication [Unknown]
  - Palpitations [Unknown]
  - Tachycardia [Unknown]
